FAERS Safety Report 25028111 (Version 3)
Quarter: 2025Q4

REPORT INFORMATION
  Report Type: Spontaneous
  Country: US (occurrence: US)
  Receive Date: 20250301
  Receipt Date: 20251015
  Transmission Date: 20260117
  Serious: No
  Sender: SANOFI AVENTIS
  Company Number: US-SA-2025SA060808

PATIENT
  Age: 24 Year
  Sex: Female

DRUGS (2)
  1. DUPIXENT [Suspect]
     Active Substance: DUPILUMAB
     Indication: Eczema
     Dosage: 300 MG, QOW
     Route: 058
     Dates: start: 202409, end: 202411
  2. DUPIXENT [Suspect]
     Active Substance: DUPILUMAB
     Dosage: 300 MG, QOW
     Route: 058
     Dates: start: 20250902

REACTIONS (6)
  - Rebound eczema [Recovering/Resolving]
  - Skin discolouration [Unknown]
  - Rash erythematous [Unknown]
  - Pruritus [Unknown]
  - Incorrect dose administered [Unknown]
  - Product regimen confusion [Unknown]

NARRATIVE: CASE EVENT DATE: 20250101
